FAERS Safety Report 7587367-0 (Version None)
Quarter: 2011Q3

REPORT INFORMATION
  Report Type: 
  Country: None (occurrence: None)
  Receive Date: 20110701
  Receipt Date: 20110622
  Transmission Date: 20111222
  Serious: Yes (Other)
  Sender: FDA-Public Use
  Company Number: US-ASTRAZENECA-2011SE00788

PATIENT
  Age: 89 Year
  Sex: Female

DRUGS (5)
  1. ASST. VITAMINS [Concomitant]
  2. OMEPRAZOLE [Suspect]
     Route: 048
  3. SYNTHROID [Concomitant]
  4. TRIAMTERENE [Concomitant]
  5. NEXIUM [Suspect]
     Indication: GASTROOESOPHAGEAL REFLUX DISEASE
     Dosage: DAILY
     Route: 048

REACTIONS (5)
  - MALAISE [None]
  - GASTROOESOPHAGEAL REFLUX DISEASE [None]
  - DRUG DOSE OMISSION [None]
  - DRUG INEFFECTIVE [None]
  - CONVULSION [None]
